FAERS Safety Report 22318887 (Version 8)
Quarter: 2024Q4

REPORT INFORMATION
  Report Type: Report from Study
  Country: CA (occurrence: CA)
  Receive Date: 20230515
  Receipt Date: 20241030
  Transmission Date: 20250115
  Serious: Yes (Other)
  Sender: TAKEDA
  Company Number: CA-TAKEDA-2022TUS045961

PATIENT
  Sex: Female

DRUGS (15)
  1. VEDOLIZUMAB [Suspect]
     Active Substance: VEDOLIZUMAB
     Indication: Crohn^s disease
     Dosage: 300 MILLIGRAM
     Route: 042
     Dates: start: 20161203
  2. VEDOLIZUMAB [Suspect]
     Active Substance: VEDOLIZUMAB
     Dosage: 300 MILLIGRAM, Q6WEEKS
     Route: 042
     Dates: start: 2017
  3. VEDOLIZUMAB [Suspect]
     Active Substance: VEDOLIZUMAB
     Dosage: 300 MILLIGRAM, Q6WEEKS
     Route: 042
  4. VEDOLIZUMAB [Suspect]
     Active Substance: VEDOLIZUMAB
     Dosage: 300 MILLIGRAM, Q4WEEKS
     Route: 042
     Dates: start: 20220727
  5. VEDOLIZUMAB [Suspect]
     Active Substance: VEDOLIZUMAB
     Dosage: 300 MILLIGRAM, Q4WEEKS
     Route: 042
  6. VEDOLIZUMAB [Suspect]
     Active Substance: VEDOLIZUMAB
     Dosage: 300 MILLIGRAM, Q4WEEKS
     Route: 042
  7. VEDOLIZUMAB [Suspect]
     Active Substance: VEDOLIZUMAB
     Dosage: 300 MILLIGRAM, Q4WEEKS
     Route: 042
  8. VEDOLIZUMAB [Suspect]
     Active Substance: VEDOLIZUMAB
     Dosage: 300 MILLIGRAM, Q4WEEKS
     Route: 042
     Dates: end: 20240913
  9. CELLCEPT [Concomitant]
     Active Substance: MYCOPHENOLATE MOFETIL
     Dosage: 500 MILLIGRAM, BID
  10. TACROLIMUS [Concomitant]
     Active Substance: TACROLIMUS
     Dosage: 3 MILLIGRAM, BID
  11. EPOETIN ALFA [Concomitant]
     Active Substance: ERYTHROPOIETIN
     Dosage: 1 MILLIGRAM, Q3WEEKS
  12. CITALOPRAM [Concomitant]
     Active Substance: CITALOPRAM
     Dosage: 30 MILLIGRAM, QD
  13. INFLIXIMAB [Concomitant]
     Active Substance: INFLIXIMAB
     Indication: Anticoagulant therapy
     Dosage: 0.5 MILLIGRAM
  14. EPREX [Concomitant]
     Active Substance: ERYTHROPOIETIN
     Dosage: 10000 INTERNATIONAL UNIT, Q3WEEKS
  15. HYDROMORPHONE [Concomitant]
     Active Substance: HYDROMORPHONE
     Dosage: UNK UNK, QD

REACTIONS (4)
  - Crohn^s disease [Recovered/Resolved]
  - Product dose omission issue [Unknown]
  - Off label use [Unknown]
  - Therapeutic response decreased [Unknown]
